FAERS Safety Report 6933565-6 (Version None)
Quarter: 2010Q3

REPORT INFORMATION
  Report Type: 
  Country: None (occurrence: None)
  Receive Date: 20100820
  Receipt Date: 20100810
  Transmission Date: 20110219
  Serious: Yes (Death, Life-Threatening, Hospitalization)
  Sender: FDA-Public Use
  Company Number: JP-PFIZER INC-2010027111

PATIENT
  Age: 77 Year
  Sex: Male
  Weight: 68 kg

DRUGS (4)
  1. HALCION [Suspect]
     Indication: INSOMNIA
     Dosage: 0.25 MG
     Route: 048
     Dates: start: 20100225, end: 20100225
  2. CEFOTIAM HYDROCHLORIDE [Concomitant]
     Indication: CHOLANGITIS
     Dosage: 1 G, 2X/DAY
     Route: 042
     Dates: start: 20100220, end: 20100222
  3. GABEXATE MESILATE [Concomitant]
     Indication: PANCREATITIS
     Dosage: 100 MG, 2X/DAY
     Route: 041
     Dates: start: 20100220, end: 20100224
  4. GASTER [Concomitant]
     Indication: GASTRIC ULCER
     Dosage: 20 MG, 2X/DAY
     Route: 042
     Dates: start: 20100222, end: 20100226

REACTIONS (3)
  - CARDIO-RESPIRATORY ARREST [None]
  - CIRCULATORY COLLAPSE [None]
  - RESPIRATORY DEPRESSION [None]
